FAERS Safety Report 6960084-3 (Version None)
Quarter: 2010Q3

REPORT INFORMATION
  Report Type: 
  Country: None (occurrence: None)
  Receive Date: 20100901
  Receipt Date: 20100820
  Transmission Date: 20110219
  Serious: Yes (Other)
  Sender: FDA-Public Use
  Company Number: PHHY2009JP43592

PATIENT
  Age: 55 Year
  Sex: Male

DRUGS (3)
  1. SANDOSTATIN [Suspect]
     Indication: GASTROINTESTINAL OBSTRUCTION
     Dosage: 300 UG/DAY
     Route: 058
  2. TS 1 [Suspect]
     Indication: GASTRIC CANCER
     Route: 048
  3. CISPLATIN [Suspect]
     Indication: GASTRIC CANCER
     Dosage: 6 MG/M^2

REACTIONS (1)
  - WHITE BLOOD CELL COUNT DECREASED [None]
